FAERS Safety Report 11249812 (Version 1)
Quarter: 2015Q3

REPORT INFORMATION
  Report Type: Spontaneous
  Country: US (occurrence: US)
  Receive Date: 20150708
  Receipt Date: 20150708
  Transmission Date: 20151125
  Serious: Yes (Death, Hospitalization)
  Sender: FDA-Public Use
  Company Number: US-ELI_LILLY_AND_COMPANY-US201005007708

PATIENT
  Sex: Male
  Weight: 55.78 kg

DRUGS (12)
  1. GEMZAR [Suspect]
     Active Substance: GEMCITABINE HYDROCHLORIDE
     Indication: PANCREATIC CARCINOMA
     Dosage: 1600 MG, UNKNOWN
     Route: 042
     Dates: start: 20091229, end: 20100421
  2. MORPHINE [Concomitant]
     Active Substance: MORPHINE
     Dosage: 60 MG, EVERY 6 HRS
     Route: 048
  3. TARCEVA [Concomitant]
     Active Substance: ERLOTINIB HYDROCHLORIDE
     Dosage: 100 MG, DAILY (1/D)
     Route: 048
  4. DECADRON [Concomitant]
     Active Substance: DEXAMETHASONE
     Dosage: 4 MG, 2/D
     Route: 042
  5. MAGNESIUM CITRATE. [Concomitant]
     Active Substance: MAGNESIUM CITRATE
     Dosage: UNK, AS NEEDED
  6. AMITRIPTYLINE [Concomitant]
     Active Substance: AMITRIPTYLINE
     Dosage: 100 MG, DAILY (1/D)
  7. LONOX [Concomitant]
     Active Substance: ATROPINE SULFATE\DIPHENOXYLATE HYDROCHLORIDE
     Dosage: 40 MG, DAILY (1/D)
  8. PHENERGAN [Concomitant]
     Active Substance: PROMETHAZINE HYDROCHLORIDE
     Dosage: 12.5 MG, EVERY 6 HRS
     Route: 042
  9. COMPAZINE [Concomitant]
     Active Substance: PROCHLORPERAZINE MALEATE
     Dosage: 10 MG, EVERY 6 HRS
     Route: 048
  10. MORPHINE [Concomitant]
     Active Substance: MORPHINE
     Dosage: 30 MG, UNK
  11. HYDROCHLOROTHIAZIDE. [Concomitant]
     Active Substance: HYDROCHLOROTHIAZIDE
     Dosage: 12.5 MG, 2/D
  12. PRILOSEC [Concomitant]
     Active Substance: OMEPRAZOLE MAGNESIUM
     Dosage: 20 MG, AS NEEDED

REACTIONS (1)
  - Malignant neoplasm progression [Fatal]
